FAERS Safety Report 8586979-5 (Version None)
Quarter: 2012Q3

REPORT INFORMATION
  Report Type: 
  Country: None (occurrence: None)
  Receive Date: 20120810
  Receipt Date: 20120802
  Transmission Date: 20120928
  Serious: Yes (Hospitalization)
  Sender: FDA-Public Use
  Company Number: US-ASTRAZENECA-2012SE30023

PATIENT
  Age: 68 Year
  Sex: Female

DRUGS (3)
  1. PRILOSEC [Suspect]
     Route: 048
  2. PRILOSEC [Suspect]
     Route: 048
  3. NEXIUM [Suspect]
     Route: 048

REACTIONS (6)
  - COUGH [None]
  - MALAISE [None]
  - RETCHING [None]
  - OESOPHAGEAL DISORDER [None]
  - DRUG INTOLERANCE [None]
  - DRUG INEFFECTIVE [None]
